FAERS Safety Report 14425269 (Version 1)
Quarter: 2018Q1

REPORT INFORMATION
  Report Type: Spontaneous
  Country: FI (occurrence: FI)
  Receive Date: 20180123
  Receipt Date: 20180123
  Transmission Date: 20180509
  Serious: Yes (Death, Other)
  Sender: FDA-Public Use
  Company Number: FI-BAYER-2018-008699

PATIENT

DRUGS (1)
  1. NEXAVAR [Suspect]
     Active Substance: SORAFENIB
     Indication: HEPATOCELLULAR CARCINOMA
     Dosage: UNK
     Dates: start: 200803, end: 200804

REACTIONS (5)
  - Toxicity to various agents [None]
  - Death [Fatal]
  - Hepatocellular carcinoma [None]
  - Fatigue [None]
  - Decreased appetite [None]
